FAERS Safety Report 26070056 (Version 1)
Quarter: 2025Q4

REPORT INFORMATION
  Report Type: Spontaneous
  Country: US (occurrence: None)
  Receive Date: 20251119
  Receipt Date: 20251119
  Transmission Date: 20260117
  Serious: Yes (Other)
  Sender: FDA-CTU
  Company Number: None

PATIENT
  Age: 50 Year
  Sex: Female
  Weight: 81.65 kg

DRUGS (1)
  1. LURASIDONE [Suspect]
     Active Substance: LURASIDONE
     Indication: Bipolar disorder
     Dates: start: 20251117, end: 20251117

REACTIONS (4)
  - Rash [None]
  - Urticaria [None]
  - Pharyngeal paraesthesia [None]
  - Pharyngeal swelling [None]

NARRATIVE: CASE EVENT DATE: 20251117
